FAERS Safety Report 8005331-4 (Version None)
Quarter: 2011Q4

REPORT INFORMATION
  Report Type: 
  Country: None (occurrence: None)
  Receive Date: 20111223
  Receipt Date: 20111220
  Transmission Date: 20120403
  Serious: Yes (Life-Threatening, Hospitalization, Other)
  Sender: FDA-Public Use
  Company Number: US-NOVOPROD-321798

PATIENT

DRUGS (13)
  1. IDEG PDS290 [Suspect]
     Dosage: 20 IU, QD
     Route: 058
     Dates: start: 20101202, end: 20110111
  2. FLOMAX [Concomitant]
     Dosage: 64 UNK, BID
  3. IDEG PDS290 [Suspect]
     Dosage: 15 IU, QD
     Dates: start: 20110211
  4. ZOCOR [Concomitant]
     Indication: HYPERLIPIDAEMIA
     Dosage: 20 MG, QD
     Route: 048
     Dates: start: 20030101
  5. LASIX [Concomitant]
     Indication: HYPERTENSION
     Dosage: 40 MG, QD
     Route: 048
     Dates: start: 20030101
  6. IDEG PDS290 [Suspect]
     Indication: TYPE 2 DIABETES MELLITUS
     Dosage: 24 IU, QD
     Route: 058
     Dates: start: 20091119, end: 20101116
  7. COREG [Concomitant]
     Dosage: 6.25 MG, BID
  8. METFORMIN HCL [Concomitant]
     Indication: TYPE 2 DIABETES MELLITUS
     Dosage: 2000 MG, QD
     Route: 048
     Dates: start: 20040101
  9. LASIX [Concomitant]
     Dosage: 80 MG, UNK
     Route: 042
  10. BENAZEPRIL HYDROCHLORIDE [Concomitant]
     Dosage: 20 MG, UNK
  11. INSULATARD FLEXPEN HM(GE) [Suspect]
     Indication: TYPE 2 DIABETES MELLITUS
     Dosage: 20 IU, QD
     Route: 058
     Dates: start: 20101117, end: 20101201
  12. COUMADIN [Concomitant]
     Indication: ATRIAL FIBRILLATION
     Dosage: 7.5 MG, QD
     Route: 048
     Dates: start: 20070101
  13. COREG [Concomitant]
     Indication: HYPERTENSION
     Dosage: 50 MG, QD
     Route: 048
     Dates: start: 20030101

REACTIONS (2)
  - VENTRICULAR FIBRILLATION [None]
  - CARDIAC FAILURE CONGESTIVE [None]
